FAERS Safety Report 6160006-1 (Version None)
Quarter: 2009Q2

REPORT INFORMATION
  Report Type: 
  Country: None (occurrence: None)
  Receive Date: 20090416
  Receipt Date: 20090323
  Transmission Date: 20091009
  Serious: Yes (Hospitalization)
  Sender: FDA-Public Use
  Company Number: 6050030

PATIENT
  Age: 80 Year
  Sex: Female

DRUGS (5)
  1. LEVOTHYROXINE SODIUM [Suspect]
     Indication: THYROIDECTOMY
     Dosage: 0.5 DOSAGE FORM FOR LONG TIME ORAL
     Route: 048
  2. SINTROM [Suspect]
     Indication: ARRHYTHMIA
     Dosage: 3/4 AND 1 DOSAGE FORM DAILY FOR LONG TIME
     Dates: start: 20081216
  3. DIGOXIN [Concomitant]
  4. LASILIX FAIBLE 20 MG (20 MG, TABLET) (FUROSEMIDE) [Concomitant]
  5. ISKEDYL FORT (RAUBASINE, DIHYDROERGOCRISTINE MESIALTE) [Concomitant]

REACTIONS (8)
  - ATRIAL FIBRILLATION [None]
  - CARDIAC FAILURE [None]
  - DRUG INTERACTION [None]
  - DYSPNOEA EXERTIONAL [None]
  - FALL [None]
  - HAEMATOMA [None]
  - OEDEMA PERIPHERAL [None]
  - WEIGHT INCREASED [None]
